FAERS Safety Report 4551379-1 (Version None)
Quarter: 2005Q1

REPORT INFORMATION
  Report Type: 
  Country: None (occurrence: None)
  Receive Date: 20050111
  Receipt Date: 20050111
  Transmission Date: 20050727
  Serious: Yes (Hospitalization)
  Sender: FDA-Public Use
  Company Number: None

PATIENT
  Age: 44 Year
  Sex: Female
  Weight: 73 kg

DRUGS (8)
  1. DOCETAXEL   75 MG/M2 [Suspect]
     Indication: BREAST CANCER
     Dosage: 142.5MG   X 1    INTRAVENOUS
     Route: 042
     Dates: start: 20041216, end: 20041216
  2. CAPECITABINE [Suspect]
     Indication: BREAST CANCER
     Dosage: 950 MG    TWICE DAILY    ORAL
     Route: 048
     Dates: start: 20041216, end: 20041229
  3. EFFEXOR [Concomitant]
  4. RITALIN [Concomitant]
  5. RANITIDINE [Concomitant]
  6. ALEVE [Concomitant]
  7. TYLENOL [Concomitant]
  8. MULTIVIT [Concomitant]

REACTIONS (2)
  - CELLULITIS [None]
  - LYMPHOEDEMA [None]
